FAERS Safety Report 4357660-3 (Version None)
Quarter: 2004Q2

REPORT INFORMATION
  Report Type: 
  Country: None (occurrence: None)
  Receive Date: 20040513
  Receipt Date: 20040310
  Transmission Date: 20050107
  Serious: Yes (Hospitalization)
  Sender: FDA-Public Use
  Company Number: US-MERCK-0403USA01238

PATIENT
  Age: 87 Year
  Sex: Female
  Weight: 55 kg

DRUGS (5)
  1. TYLENOL (CAPLET) [Concomitant]
     Route: 065
  2. NORVASC [Concomitant]
     Route: 065
  3. ASPIRIN [Concomitant]
     Route: 065
  4. INDAPAMIDE [Concomitant]
     Route: 065
  5. VIOXX [Suspect]
     Indication: ARTHRITIS
     Route: 048
     Dates: end: 20001101

REACTIONS (3)
  - FEAR [None]
  - HAEMORRHAGE [None]
  - STRESS SYMPTOMS [None]
